FAERS Safety Report 24330395 (Version 1)
Quarter: 2024Q3

REPORT INFORMATION
  Report Type: Spontaneous
  Country: PR (occurrence: PR)
  Receive Date: 20240918
  Receipt Date: 20240918
  Transmission Date: 20241017
  Serious: No
  Sender: ABBVIE
  Company Number: PR-ABBVIE-5922568

PATIENT
  Age: 54 Year
  Sex: Female
  Weight: 95 kg

DRUGS (1)
  1. RINVOQ [Suspect]
     Active Substance: UPADACITINIB
     Indication: Rheumatoid arthritis
     Route: 048
     Dates: start: 20191115

REACTIONS (1)
  - Grip strength decreased [Not Recovered/Not Resolved]

NARRATIVE: CASE EVENT DATE: 20240301
